FAERS Safety Report 9458302 (Version 1)
Quarter: 2013Q3

REPORT INFORMATION
  Report Type: Spontaneous
  Country: US (occurrence: None)
  Receive Date: 20130813
  Receipt Date: 20130813
  Transmission Date: 20140515
  Serious: Yes (Other)
  Sender: FDA-Public Use
  Company Number: None

PATIENT
  Age: 20 Year
  Sex: Female
  Weight: 54.43 kg

DRUGS (1)
  1. LARIAM [Suspect]
     Indication: MALARIA PROPHYLAXIS
     Dosage: 1 TAKEN BY MOUTH
     Route: 048

REACTIONS (8)
  - Nightmare [None]
  - Hallucination [None]
  - Personality change [None]
  - Mental disorder [None]
  - Tinnitus [None]
  - Depression [None]
  - Anxiety [None]
  - Feeling abnormal [None]
